FAERS Safety Report 8983320 (Version 1)
Quarter: 2012Q4

REPORT INFORMATION
  Report Type: 
  Country: NL (occurrence: NL)
  Receive Date: 20121224
  Receipt Date: 20121224
  Transmission Date: 20130627
  Serious: Yes (Other)
  Sender: FDA-Public Use
  Company Number: NL-RANBAXY-2012R1-63488

PATIENT
  Age: 34 Year
  Sex: Male

DRUGS (1)
  1. CLARITHROMYCIN [Suspect]
     Indication: SINUSITIS
     Dosage: UNK
     Route: 065

REACTIONS (4)
  - Delirium [Unknown]
  - Hallucination [Unknown]
  - Agitation [Unknown]
  - Aggression [Unknown]
